FAERS Safety Report 25366860 (Version 1)
Quarter: 2025Q2

REPORT INFORMATION
  Report Type: Spontaneous
  Country: PL (occurrence: PL)
  Receive Date: 20250528
  Receipt Date: 20250528
  Transmission Date: 20250717
  Serious: Yes (Other)
  Sender: AUROBINDO
  Company Number: PL-URPL-DML-MLP.4401.2.12348.2021

PATIENT
  Age: 31 Year
  Sex: Female
  Weight: 55 kg

DRUGS (4)
  1. PREGABALIN [Suspect]
     Active Substance: PREGABALIN
     Indication: Generalised anxiety disorder
     Dosage: 1 DOSAGE FORM, ONCE A DAY (USED FOR 4 WEEKS IN THE EVENING
     Route: 048
  2. PREGABALIN [Suspect]
     Active Substance: PREGABALIN
     Indication: Neurosis
  3. Prefaxine [Concomitant]
     Indication: Generalised anxiety disorder
     Dosage: 1 DOSAGE FORM, ONCE A DAY (ONHOING THERAPY, DRUG TAKEN IN THE MORNING
     Route: 048
     Dates: start: 20210819
  4. Prefaxine [Concomitant]
     Indication: Neurosis

REACTIONS (6)
  - Dry mouth [Not Recovered/Not Resolved]
  - Feeling jittery [Not Recovered/Not Resolved]
  - Palpitations [Not Recovered/Not Resolved]
  - Seizure [Not Recovered/Not Resolved]
  - Weight decreased [Not Recovered/Not Resolved]
  - Food aversion [Not Recovered/Not Resolved]
